FAERS Safety Report 12166276 (Version 1)
Quarter: 2016Q1

REPORT INFORMATION
  Report Type: Spontaneous
  Country: DE (occurrence: DE)
  Receive Date: 20160309
  Receipt Date: 20160309
  Transmission Date: 20160526
  Serious: Yes (Hospitalization, Other)
  Sender: FDA-Public Use
  Company Number: PHHY2016DE026106

PATIENT
  Sex: Male

DRUGS (2)
  1. EVEROLIMUS [Suspect]
     Active Substance: EVEROLIMUS
     Indication: ANGIOMYOLIPOMA
     Dosage: 5 MG, QD (DAILY)
     Route: 065
     Dates: start: 201305, end: 201306
  2. EVEROLIMUS [Suspect]
     Active Substance: EVEROLIMUS
     Dosage: 5 MG, QD
     Route: 065

REACTIONS (8)
  - Noninfective gingivitis [Unknown]
  - Seizure [Recovered/Resolved]
  - Abnormal behaviour [Recovering/Resolving]
  - Infection [Unknown]
  - Drop attacks [Unknown]
  - Cystitis [Unknown]
  - Screaming [Unknown]
  - Aggression [Unknown]

NARRATIVE: CASE EVENT DATE: 201306
